FAERS Safety Report 14987699 (Version 3)
Quarter: 2020Q3

REPORT INFORMATION
  Report Type: Spontaneous
  Country: PL (occurrence: PL)
  Receive Date: 20180608
  Receipt Date: 20181029
  Transmission Date: 20201105
  Serious: Yes (Hospitalization, Other)
  Sender: FDA-Public Use
  Company Number: PL-AXELLIA-001720

PATIENT
  Age: 47 Year
  Sex: Male

DRUGS (8)
  1. AMIKACIN. [Suspect]
     Active Substance: AMIKACIN
     Indication: PNEUMONIA BACTERIAL
     Dosage: 480 MG, 1X/DAY
     Route: 042
  2. DALBAVANCIN. [Concomitant]
     Active Substance: DALBAVANCIN
  3. FLUCONAZOLE. [Concomitant]
     Active Substance: FLUCONAZOLE
  4. CIPROFLOXACIN. [Suspect]
     Active Substance: CIPROFLOXACIN
     Indication: PSEUDOMONAS INFECTION
     Dosage: 400 MG, 3X/DAY ?DOSE 1200 MG
     Route: 042
  5. VANCOMYCIN [Suspect]
     Active Substance: VANCOMYCIN
     Indication: STAPHYLOCOCCAL INFECTION
     Dosage: 1 G, 2X/DAY ?DOSE 2 GM
     Route: 042
  6. MEROPENEM. [Suspect]
     Active Substance: MEROPENEM
     Indication: ESCHERICHIA INFECTION
     Dosage: 3X1 G I.V.
     Route: 042
  7. MIDAZOLAM HYDROCHLORIDE. [Suspect]
     Active Substance: MIDAZOLAM HYDROCHLORIDE
     Indication: PRODUCT USED FOR UNKNOWN INDICATION
  8. NOREPINEPHRINE. [Concomitant]
     Active Substance: NOREPINEPHRINE

REACTIONS (12)
  - Inflammation [Unknown]
  - Staphylococcal infection [Unknown]
  - Drug dependence [Unknown]
  - Inflammatory marker increased [Unknown]
  - Condition aggravated [Unknown]
  - Sepsis [Unknown]
  - Nervous system disorder [Unknown]
  - Drug ineffective [Unknown]
  - Pneumonia [Unknown]
  - Escherichia sepsis [Unknown]
  - Empyema [Unknown]
  - Pneumothorax [Unknown]
